FAERS Safety Report 7631415-6 (Version None)
Quarter: 2011Q3

REPORT INFORMATION
  Report Type: 
  Country: None (occurrence: None)
  Receive Date: 20110725
  Receipt Date: 20110718
  Transmission Date: 20111222
  Serious: Yes (Hospitalization)
  Sender: FDA-Public Use
  Company Number: US-JNJFOC-20110708043

PATIENT
  Age: 50 Year
  Sex: Female
  Weight: 65.77 kg

DRUGS (3)
  1. TYLENOL PM [Concomitant]
     Indication: SLEEP DISORDER
     Route: 065
  2. HORMONE REPLACEMENT [Concomitant]
     Indication: HORMONE REPLACEMENT THERAPY
     Route: 065
  3. NUCYNTA [Suspect]
     Indication: PROCEDURAL PAIN
     Dosage: 1-2 TABLETS, 4-6 HOURS
     Route: 048
     Dates: start: 20101215, end: 20101217

REACTIONS (2)
  - MUSCLE CONTRACTURE [None]
  - BACK PAIN [None]
